FAERS Safety Report 18310800 (Version 1)
Quarter: 2020Q3

REPORT INFORMATION
  Report Type: Spontaneous
  Country: US (occurrence: US)
  Receive Date: 20200924
  Receipt Date: 20200924
  Transmission Date: 20201103
  Serious: Yes (Other)
  Sender: FDA-Public Use
  Company Number: US-SA-2020SA259577

PATIENT

DRUGS (1)
  1. ZANTAC [Suspect]
     Active Substance: RANITIDINE HYDROCHLORIDE
     Dosage: UNK
     Dates: start: 199501, end: 201006

REACTIONS (4)
  - Pharyngeal disorder [Unknown]
  - Tonsillar disorder [Unknown]
  - Lymphadenopathy [Unknown]
  - Prostate cancer [Unknown]

NARRATIVE: CASE EVENT DATE: 201302
